FAERS Safety Report 4302869-8 (Version None)
Quarter: 2004Q1

REPORT INFORMATION
  Report Type: 
  Country: None (occurrence: None)
  Receive Date: 20040223
  Receipt Date: 20040223
  Transmission Date: 20041129
  Serious: Yes (Hospitalization)
  Sender: FDA-Public Use
  Company Number: None

PATIENT
  Age: 49 Year
  Sex: Male
  Weight: 57.2 kg

DRUGS (2)
  1. REQUIP [Suspect]
     Indication: PARKINSONISM
     Dosage: 0.125 MG TID ORAL
     Route: 048
     Dates: start: 20030829, end: 20030901
  2. TEQUIN [Suspect]
     Dosage: 400 MG DAILY ORAL
     Route: 048
     Dates: start: 20030826, end: 20030902

REACTIONS (22)
  - COMMUNICATION DISORDER [None]
  - COUGH [None]
  - DEPRESSED LEVEL OF CONSCIOUSNESS [None]
  - DRUG LEVEL BELOW THERAPEUTIC [None]
  - DRUG WITHDRAWAL SYNDROME [None]
  - DYSPHAGIA [None]
  - DYSPHONIA [None]
  - EYE MOVEMENT DISORDER [None]
  - HYPERTONIA [None]
  - MUSCLE RIGIDITY [None]
  - NEUROLEPTIC MALIGNANT SYNDROME [None]
  - NUCHAL RIGIDITY [None]
  - PHARYNGITIS [None]
  - PNEUMONIA ASPIRATION [None]
  - PUPILS UNEQUAL [None]
  - PURPURA [None]
  - PYREXIA [None]
  - STATUS EPILEPTICUS [None]
  - TACHYCARDIA [None]
  - TACHYPNOEA [None]
  - TREMOR [None]
  - UNRESPONSIVE TO PAIN STIMULI [None]
